FAERS Safety Report 19790787 (Version 2)
Quarter: 2021Q4

REPORT INFORMATION
  Report Type: Spontaneous
  Country: US (occurrence: US)
  Receive Date: 20210906
  Receipt Date: 20211013
  Transmission Date: 20220303
  Serious: Yes (Hospitalization)
  Sender: FDA-Public Use
  Company Number: US-BIOGEN-2021BI01043594

PATIENT
  Age: 6 Year
  Sex: Male
  Weight: 21 kg

DRUGS (27)
  1. SPINRAZA [Suspect]
     Active Substance: NUSINERSEN
     Indication: Spinal muscular atrophy
     Route: 065
     Dates: start: 20201216, end: 20201216
  2. SPINRAZA [Suspect]
     Active Substance: NUSINERSEN
     Route: 037
     Dates: start: 20170222, end: 20170222
  3. SPINRAZA [Suspect]
     Active Substance: NUSINERSEN
     Route: 037
     Dates: start: 20191218, end: 20191218
  4. SPINRAZA [Suspect]
     Active Substance: NUSINERSEN
     Route: 037
     Dates: start: 20200407, end: 20200407
  5. SPINRAZA [Suspect]
     Active Substance: NUSINERSEN
     Route: 037
     Dates: start: 20200819, end: 20200819
  6. SPINRAZA [Suspect]
     Active Substance: NUSINERSEN
     Route: 037
     Dates: start: 20201216, end: 20201216
  7. SPINRAZA [Suspect]
     Active Substance: NUSINERSEN
     Route: 037
     Dates: start: 20200414, end: 20200414
  8. SPINRAZA [Suspect]
     Active Substance: NUSINERSEN
     Route: 037
     Dates: start: 20200818, end: 20200818
  9. APITEGROMAB [Suspect]
     Active Substance: APITEGROMAB
     Indication: Spinal muscular atrophy
     Route: 065
     Dates: start: 20191017, end: 20191017
  10. APITEGROMAB [Suspect]
     Active Substance: APITEGROMAB
     Route: 065
     Dates: start: 20191119, end: 20191119
  11. APITEGROMAB [Suspect]
     Active Substance: APITEGROMAB
     Route: 065
     Dates: start: 20191217, end: 20191217
  12. APITEGROMAB [Suspect]
     Active Substance: APITEGROMAB
     Route: 065
     Dates: start: 20200114, end: 20200114
  13. APITEGROMAB [Suspect]
     Active Substance: APITEGROMAB
     Route: 065
     Dates: start: 20200211, end: 20200211
  14. APITEGROMAB [Suspect]
     Active Substance: APITEGROMAB
     Route: 065
     Dates: start: 20200303, end: 20200303
  15. APITEGROMAB [Suspect]
     Active Substance: APITEGROMAB
     Route: 065
     Dates: start: 20200714, end: 20200714
  16. APITEGROMAB [Suspect]
     Active Substance: APITEGROMAB
     Route: 065
     Dates: start: 20200818, end: 20200818
  17. APITEGROMAB [Suspect]
     Active Substance: APITEGROMAB
     Route: 065
     Dates: start: 20200915, end: 20200915
  18. APITEGROMAB [Suspect]
     Active Substance: APITEGROMAB
     Route: 065
     Dates: start: 20201006, end: 20201006
  19. APITEGROMAB [Suspect]
     Active Substance: APITEGROMAB
     Route: 065
     Dates: start: 20201104, end: 20201104
  20. APITEGROMAB [Suspect]
     Active Substance: APITEGROMAB
     Route: 065
     Dates: start: 20201203, end: 20201203
  21. APITEGROMAB [Suspect]
     Active Substance: APITEGROMAB
     Route: 065
     Dates: start: 20210106, end: 20210106
  22. APITEGROMAB [Suspect]
     Active Substance: APITEGROMAB
     Route: 065
     Dates: start: 20210209, end: 20210209
  23. DIETARY SUPPLEMENT [Concomitant]
     Active Substance: DIETARY SUPPLEMENT
     Indication: Product used for unknown indication
     Route: 065
     Dates: start: 201508
  24. CALCIUM CARBONATE [Concomitant]
     Active Substance: CALCIUM CARBONATE
     Indication: Product used for unknown indication
     Route: 065
  25. Vitamin D (calcium carbonate) [Concomitant]
     Indication: Product used for unknown indication
     Route: 065
  26. AMINO ACIDS, SOURCE UNSPECIFIED [Concomitant]
     Active Substance: AMINO ACIDS, SOURCE UNSPECIFIED
     Indication: Product used for unknown indication
     Route: 065
     Dates: start: 201602
  27. ALBUTEROL SULFATE [Concomitant]
     Active Substance: ALBUTEROL SULFATE
     Indication: Product used for unknown indication
     Route: 065
     Dates: start: 201509

REACTIONS (15)
  - Joint dislocation [Recovered/Resolved with Sequelae]
  - Procedural pain [Unknown]
  - Abdominal pain [Unknown]
  - Nausea [Unknown]
  - Anaemia [Unknown]
  - Tachycardia [Unknown]
  - Hypertension [Unknown]
  - Abdominal distension [Unknown]
  - Urinary retention [Unknown]
  - Anxiety [Unknown]
  - Aphthous ulcer [Not Recovered/Not Resolved]
  - Gastroenteritis viral [Recovered/Resolved]
  - Sinusitis bacterial [Recovered/Resolved]
  - Dermatitis [Not Recovered/Not Resolved]
  - Pneumonia [Recovered/Resolved]

NARRATIVE: CASE EVENT DATE: 20180101
